FAERS Safety Report 9256354 (Version 2)
Quarter: 2013Q2

REPORT INFORMATION
  Report Type: Spontaneous
  Country: DE (occurrence: DE)
  Receive Date: 20130425
  Receipt Date: 20130503
  Transmission Date: 20140414
  Serious: Yes (Death, Hospitalization)
  Sender: FDA-Public Use
  Company Number: DE-AMGEN-DEUSP2013028299

PATIENT
  Sex: Male

DRUGS (16)
  1. PEGFILGRASTIM [Suspect]
     Indication: B-CELL LYMPHOMA
     Dosage: 6 MG, Q2WK
     Route: 058
     Dates: start: 20130326
  2. CYCLOPHOSPHAMIDE [Suspect]
     Indication: B-CELL LYMPHOMA
     Dosage: 1500 MG, Q2WK
     Route: 042
     Dates: start: 20130321
  3. DOXORUBICINE /00330901/ [Suspect]
     Indication: B-CELL LYMPHOMA
     Dosage: 100 MG, Q2WK
     Route: 042
     Dates: start: 20130321
  4. VINCRISTINE [Suspect]
     Indication: B-CELL LYMPHOMA
     Dosage: 4.3 MG, Q2WK
     Route: 042
     Dates: start: 20130321
  5. PREDNISONE [Suspect]
     Indication: B-CELL LYMPHOMA
     Dosage: 100 MG, 6 D CYCLE
     Route: 042
     Dates: start: 20130321
  6. RITUXIMAB [Concomitant]
     Indication: B-CELL LYMPHOMA
     Dosage: 750 MG, Q2WK
     Route: 042
     Dates: start: 20130320
  7. ACICLOVIR [Concomitant]
     Indication: PROPHYLAXIS
     Dosage: 1600 MG, 1 IN 1 D
     Route: 048
     Dates: start: 20130320
  8. GRANISETRON                        /01178102/ [Concomitant]
     Indication: ANTIEMETIC SUPPORTIVE CARE
     Dosage: 1 MG, Q2WK
     Route: 042
     Dates: start: 20130321
  9. MESNA [Concomitant]
     Indication: PROPHYLAXIS
     Dosage: 900 MG, Q2WK
     Route: 048
  10. LEVOFLOXACIN [Concomitant]
     Indication: PROPHYLAXIS
     Dosage: 500 MG, 7D/CYCLE
     Route: 048
  11. TORASEMIDE [Concomitant]
     Indication: RENAL FAILURE
     Dosage: 20/12.5 MG (1 IN 1 D)
     Route: 048
  12. SOLIFENACIN SUCCINATE [Concomitant]
     Indication: INCONTINENCE
     Dosage: 10 MG, 1 IN 1 D
  13. ISOPHANE INSULIN [Concomitant]
     Indication: DIABETES MELLITUS
     Dosage: 10 IU, 2 IN 1 D
     Route: 058
  14. RIVAROXABAN [Concomitant]
     Indication: PROPHYLAXIS
     Dosage: 10 MG, 1 IN 1 D
     Route: 048
  15. HYDROCHLOROTHIAZIDE W/ LISINOPRIL DIHYDRATE [Concomitant]
     Indication: HYPERTENSION
     Dosage: 20/12 (5 MG EACH DAY)
     Route: 048
  16. PANTOPRAZOL [Concomitant]
     Indication: PROPHYLAXIS
     Dosage: 40 MG, 1 IN 1 D
     Dates: start: 20130322

REACTIONS (6)
  - Leukopenia [Recovered/Resolved]
  - Febrile neutropenia [Fatal]
  - Pneumonia aspiration [Fatal]
  - General physical health deterioration [Recovered/Resolved]
  - Thrombocytopenia [Not Recovered/Not Resolved]
  - Hyperglycaemia [Unknown]
